FAERS Safety Report 7683049-5 (Version None)
Quarter: 2011Q3

REPORT INFORMATION
  Report Type: 
  Country: None (occurrence: None)
  Receive Date: 20110815
  Receipt Date: 20110811
  Transmission Date: 20111222
  Serious: Yes (Death)
  Sender: FDA-Public Use
  Company Number: US-B.I. PHARMACEUTICALS,INC./RIDGEFIELD-2011-BP-19764BP

PATIENT
  Age: 72 Year
  Sex: Female

DRUGS (4)
  1. EXCEDRIN (MIGRAINE) [Suspect]
  2. PRADAXA [Suspect]
     Indication: ATRIAL FIBRILLATION
     Dosage: 300 MG
     Route: 048
     Dates: start: 20110701
  3. DILTIAZEM [Suspect]
     Indication: ATRIAL FIBRILLATION
     Dates: start: 20110701
  4. NSAID [Suspect]
     Indication: PAIN

REACTIONS (3)
  - RENAL FAILURE ACUTE [None]
  - HAEMOPTYSIS [None]
  - PAIN [None]
